FAERS Safety Report 23777715 (Version 1)
Quarter: 2024Q2

REPORT INFORMATION
  Report Type: Spontaneous
  Country: BR (occurrence: BR)
  Receive Date: 20240424
  Receipt Date: 20240424
  Transmission Date: 20240716
  Serious: Yes (Hospitalization)
  Sender: FDA-Public Use
  Company Number: BR-002147023-NVSC2023BR095914

PATIENT
  Sex: Male

DRUGS (9)
  1. ATENOLOL [Suspect]
     Active Substance: ATENOLOL
     Indication: Hypertension
     Dosage: 2 DOSAGE FORM, BID
     Route: 048
     Dates: start: 20230424
  2. ATENOLOL [Suspect]
     Active Substance: ATENOLOL
     Dosage: 25 MG, 30TABLETS, 1 AT DAY AND 1 AT NIGHT
     Route: 048
  3. ATENOLOL [Suspect]
     Active Substance: ATENOLOL
     Dosage: 50 MG, 30TABLETS
     Route: 065
  4. ATENOLOL [Suspect]
     Active Substance: ATENOLOL
     Dosage: UNK (HALF TABLET IN THE MORNING AND 1 TAB DURING EVENING)
     Route: 048
     Dates: start: 20230426
  5. PROPRANOLOL HYDROCHLORIDE [Suspect]
     Active Substance: PROPRANOLOL HYDROCHLORIDE
     Indication: Hypertension
     Route: 065
  6. CAPTOPRIL [Suspect]
     Active Substance: CAPTOPRIL
     Indication: Hypertension
     Dosage: UNK
     Route: 065
  7. INDAPAMIDE [Suspect]
     Active Substance: INDAPAMIDE
     Indication: Polyuria
     Route: 065
  8. LOSARTAN [Suspect]
     Active Substance: LOSARTAN
     Indication: Hypertension
     Dosage: UNK
     Route: 065
  9. ISORDIL [Concomitant]
     Active Substance: ISOSORBIDE DINITRATE
     Route: 065

REACTIONS (12)
  - Illness [Unknown]
  - Malaise [Unknown]
  - Nausea [Unknown]
  - Retching [Unknown]
  - Hypertension [Recovering/Resolving]
  - Stress [Unknown]
  - Feeling abnormal [Unknown]
  - Pain [Unknown]
  - Vomiting [Unknown]
  - Headache [Unknown]
  - Dizziness [Unknown]
  - Drug ineffective [Unknown]

NARRATIVE: CASE EVENT DATE: 20230425
